FAERS Safety Report 7228149-9 (Version None)
Quarter: 2011Q1

REPORT INFORMATION
  Report Type: 
  Country: None (occurrence: None)
  Receive Date: 20110114
  Receipt Date: 20110110
  Transmission Date: 20110831
  Serious: Yes (Hospitalization)
  Sender: FDA-Public Use
  Company Number: US-US-EMD SERONO, INC.-7035543

PATIENT
  Sex: Female

DRUGS (3)
  1. REBIF [Suspect]
     Indication: PRODUCT USED FOR UNKNOWN INDICATION
     Route: 058
     Dates: start: 20101222, end: 20101201
  2. UNSPECIFIED MEDICATION [Concomitant]
     Indication: PREMEDICATION
  3. REBIF [Suspect]

REACTIONS (2)
  - VISION BLURRED [None]
  - ASTHENIA [None]
